FAERS Safety Report 20605458 (Version 1)
Quarter: 2022Q1

REPORT INFORMATION
  Report Type: Spontaneous
  Country: FR (occurrence: FR)
  Receive Date: 20220317
  Receipt Date: 20220317
  Transmission Date: 20220423
  Serious: Yes (Death, Life-Threatening)
  Sender: FDA-Public Use
  Company Number: None

PATIENT
  Age: 51 Year
  Sex: Male

DRUGS (3)
  1. OXALIPLATIN [Suspect]
     Active Substance: OXALIPLATIN
     Indication: Pseudomyxoma peritonei
     Route: 042
     Dates: start: 20220106, end: 20220108
  2. CHLORPROMAZINE [Suspect]
     Active Substance: CHLORPROMAZINE
     Indication: Prophylaxis of nausea and vomiting
     Dosage: STRENGTH 25 MG/5 ML,
     Route: 042
     Dates: start: 20220106, end: 20220108
  3. FLUOROURACIL [Suspect]
     Active Substance: FLUOROURACIL
     Indication: Pseudomyxoma peritonei
     Route: 042
     Dates: start: 20220106, end: 20220108

REACTIONS (4)
  - Tonic convulsion [Fatal]
  - Cardiac arrest [Fatal]
  - Ventricular arrhythmia [Fatal]
  - Off label use [Unknown]

NARRATIVE: CASE EVENT DATE: 20220106
